FAERS Safety Report 14412638 (Version 4)
Quarter: 2018Q1

REPORT INFORMATION
  Report Type: Spontaneous
  Country: DE (occurrence: DE)
  Receive Date: 20180119
  Receipt Date: 20180213
  Transmission Date: 20180509
  Serious: Yes (Other)
  Sender: FDA-Public Use
  Company Number: DE-PFIZER INC-2018025098

PATIENT
  Age: 76 Year
  Sex: Male

DRUGS (24)
  1. MELPERONE [Suspect]
     Active Substance: MELPERONE
     Dosage: 100 MG, DAILY
     Route: 065
  2. MELPERONE [Suspect]
     Active Substance: MELPERONE
     Dosage: 50 MG, 2X/DAY (0-0-1-1, BEFORE THE INTERVENTION)
  3. PREDNISOLONE. [Concomitant]
     Active Substance: PREDNISOLONE
     Dosage: 5 MG, 1X/DAY (1-0-0, BEFORE THE INTERVENTION, AFTER THE INTERVENTION)
  4. METOCLOPRAMIDE. [Concomitant]
     Active Substance: METOCLOPRAMIDE
     Dosage: 10 MG, 3X/DAY (1-1-1,BEFORE THE INTERVENTION, AFTER THE INTERVENTION)
  5. PANTOPRAZOLE [Concomitant]
     Active Substance: PANTOPRAZOLE
     Dosage: 80 MG, 1X/DAY
  6. SODIUM PICOSULFATE [Concomitant]
     Active Substance: SODIUM PICOSULFATE
     Indication: CONSTIPATION
     Dosage: 15 MG, UNK
     Route: 048
  7. XIPAMIDE [Concomitant]
     Active Substance: XIPAMIDE
     Dosage: 10 MG, 1X/DAY (1-0-0, BEFORE THE INTERVENTION, AFTER THE INTERVENTION)
  8. NOVAMINSULFON [Concomitant]
     Active Substance: METAMIZOLE
     Indication: PAIN
     Dosage: 500 MG, 4X/DAY (1-1-1-1 BEFORE THE INTERVENTION, AFTER THE INTERVENTION)
     Route: 048
  9. AMIODARONE HCL [Suspect]
     Active Substance: AMIODARONE HYDROCHLORIDE
     Dosage: 200 MG, DAILY (1-0-0, BEFORE THE INTERVENTION, AFTER THE INTERVENTION)
     Route: 065
  10. CITALOPRAM [Interacting]
     Active Substance: CITALOPRAM HYDROBROMIDE
     Dosage: 20 MG, DAILY (1-0-0, BEFORE THE INTERVENTION)
     Route: 065
  11. INSULIN LISPRO [Concomitant]
     Active Substance: INSULIN LISPRO
     Dosage: UNK, (ACCORDING TO PLAN, BEFORE THE INTERVENTION, AFTER THE INTERVENTION)
  12. RISPERIDONE. [Suspect]
     Active Substance: RISPERIDONE
     Dosage: 1 MG, DAILY (0-0-1, AFTER THE INTERVENTION)
     Route: 065
  13. HYDROMORPHONE [Concomitant]
     Active Substance: HYDROMORPHONE
     Indication: DYSPNOEA
     Dosage: 3.9 MG, UNK
     Route: 048
  14. APIXABAN [Concomitant]
     Active Substance: APIXABAN
     Dosage: 2.5 MG, 2X/DAY (1-0-1, BEFORE THE INTERVENTION, AFTER THE INTERVENTION)
  15. POTASSIUM [Concomitant]
     Active Substance: POTASSIUM
     Dosage: UNK, 4X/DAY (1-1-1-1, BEFORE THE INTERVENTION, AFTER THE INTERVENTION)
  16. FOLIC ACID. [Concomitant]
     Active Substance: FOLIC ACID
     Dosage: 5 MG, DAILY (1-0-0, BEFORE THE INTERVENTION, AFTER THE INTERVENTION)
  17. BISOPROLOL [Concomitant]
     Active Substance: BISOPROLOL
     Dosage: 5 MG, 1X/DAY (1-0-0, BEFORE THE INTERVENTION, AFTER THE INTERVENTION)
  18. TORASEMIDE [Concomitant]
     Active Substance: TORSEMIDE
     Dosage: 10 MG, 2X/DAY (2-0-0, BEFORE THE INTERVENTION, AFTER THE INTERVENTION)
  19. LORAZEPAM. [Concomitant]
     Active Substance: LORAZEPAM
     Indication: RESTLESSNESS
     Dosage: 1 MG, UNK
     Route: 060
  20. PANTOPRAZOLE [Concomitant]
     Active Substance: PANTOPRAZOLE
     Dosage: 40 MG, 2X/DAY (1-0-1, BEFORE THE INTERVENTION, AFTER THE INTERVENTION)
  21. GRANISETRON [Concomitant]
     Active Substance: GRANISETRON
     Indication: NAUSEA
     Dosage: 1 MG, UNK (MAX. 2X DAILY)
     Route: 042
  22. HYDROMORPHONE [Concomitant]
     Active Substance: HYDROMORPHONE
     Indication: PAIN
     Dosage: 16 MG, 2X/DAY (1-0-1, BEFORE THE INTERVENTION, AFTER THE INTERVENTION )
  23. LORAZEPAM. [Concomitant]
     Active Substance: LORAZEPAM
     Indication: SLEEP DISORDER
  24. NITRENDIPINE [Concomitant]
     Active Substance: NITRENDIPINE
     Indication: HYPERTENSION
     Dosage: 5 MG, UNK
     Route: 048

REACTIONS (2)
  - Electrocardiogram QT prolonged [Unknown]
  - Drug interaction [Unknown]
